FAERS Safety Report 23386223 (Version 1)
Quarter: 2024Q1

REPORT INFORMATION
  Report Type: Report from Study
  Country: US (occurrence: None)
  Receive Date: 20240110
  Receipt Date: 20240110
  Transmission Date: 20240410
  Serious: Yes (Hospitalization, Other)
  Sender: FDA-Public Use
  Company Number: 2024A003402

PATIENT

DRUGS (1)
  1. SYMBICORT [Suspect]
     Active Substance: BUDESONIDE\FORMOTEROL FUMARATE DIHYDRATE
     Dosage: UNKNOWN
     Route: 055

REACTIONS (9)
  - COVID-19 [Unknown]
  - Sepsis [Unknown]
  - Pneumonia [Unknown]
  - Cardiac failure congestive [Unknown]
  - Atrial fibrillation [Unknown]
  - Hypertension [Unknown]
  - Chronic obstructive pulmonary disease [Unknown]
  - Alcoholism [Unknown]
  - Depression [Unknown]
